FAERS Safety Report 9667799 (Version 2)
Quarter: 2013Q4

REPORT INFORMATION
  Report Type: Spontaneous
  Country: US (occurrence: US)
  Receive Date: 20131104
  Receipt Date: 20131205
  Transmission Date: 20140711
  Serious: Yes (Other)
  Sender: FDA-Public Use
  Company Number: US-PFIZER INC-2013311834

PATIENT
  Sex: 0

DRUGS (1)
  1. LIPITOR [Suspect]
     Dosage: 20 MG, DAILY

REACTIONS (2)
  - Cerebrovascular accident [Unknown]
  - Dysphagia [Unknown]
